FAERS Safety Report 8269767-9 (Version None)
Quarter: 2012Q1

REPORT INFORMATION
  Report Type: 
  Country: None (occurrence: None)
  Receive Date: 20120327
  Receipt Date: 20090826
  Transmission Date: 20120608
  Serious: Yes (Other)
  Sender: FDA-Public Use
  Company Number: PHEH2009US09928

PATIENT

DRUGS (1)
  1. GLEEVEC [Suspect]
     Dosage: 400 MG

REACTIONS (1)
  - DEPRESSION [None]
